FAERS Safety Report 8570308-7 (Version None)
Quarter: 2012Q3

REPORT INFORMATION
  Report Type: 
  Country: None (occurrence: None)
  Receive Date: 20120803
  Receipt Date: 20120723
  Transmission Date: 20120928
  Serious: No
  Sender: FDA-Public Use
  Company Number: US-009507513-1205USA00183

PATIENT

DRUGS (4)
  1. MYFORTIC [Concomitant]
  2. PROZAC [Concomitant]
  3. LIPITOR [Suspect]
     Dosage: 20 MG, QD
     Route: 048
  4. ZOCOR [Suspect]
     Route: 048

REACTIONS (2)
  - HEADACHE [None]
  - BLOOD CHOLESTEROL INCREASED [None]
